FAERS Safety Report 5530367-2 (Version None)
Quarter: 2007Q4

REPORT INFORMATION
  Report Type: 
  Country: None (occurrence: None)
  Receive Date: 20071127
  Receipt Date: 20071120
  Transmission Date: 20080405
  Serious: Yes (Other)
  Sender: FDA-Public Use
  Company Number: E2020-01838-SPO-DE

PATIENT
  Age: 82 Year
  Sex: Female
  Weight: 46 kg

DRUGS (4)
  1. ARICEPT [Suspect]
     Indication: DEMENTIA ALZHEIMER'S TYPE
     Dosage: 5 MG, 1 IN 1 D, ORAL; 2.5 MG, 1 IN 1 D, ORAL
     Route: 048
     Dates: start: 20071001, end: 20071101
  2. ARICEPT [Suspect]
     Indication: DEMENTIA ALZHEIMER'S TYPE
     Dosage: 5 MG, 1 IN 1 D, ORAL; 2.5 MG, 1 IN 1 D, ORAL
     Route: 048
     Dates: end: 20071101
  3. FENTANYL [Suspect]
     Indication: PAIN
     Dosage: 0.3333 DOSAGE FORMS, 1 IN 1 D, TRANSDERMAL
     Route: 062
     Dates: start: 20050401, end: 20071101
  4. FENTANYL [Suspect]
     Indication: PAIN
     Dosage: 0.3333 DOSAGE FORMS, 1 IN 1 D, TRANSDERMAL
     Route: 062
     Dates: end: 20071101

REACTIONS (2)
  - DRUG INTERACTION [None]
  - EXTRAPYRAMIDAL DISORDER [None]
